FAERS Safety Report 10393673 (Version 2)
Quarter: 2014Q3

REPORT INFORMATION
  Report Type: Report from Study
  Country: JP (occurrence: None)
  Receive Date: 20140815
  Receipt Date: 20140912
  Transmission Date: 20150326
  Serious: Yes (Life-Threatening, Other)
  Sender: FDA-Public Use
  Company Number: 2014MPI00959

PATIENT
  Age: 57 Year
  Sex: Female
  Weight: 46.3 kg

DRUGS (7)
  1. DAIPHEN ( SULFAMETHOXAZOLE, TRIMETHOPRIM) [Concomitant]
  2. VALTREX ( VALACICLOVIR HYDROCHLORIDE) [Concomitant]
  3. ADCETRIS [Suspect]
     Active Substance: BRENTUXIMAB VEDOTIN
     Indication: HODGKIN^S DISEASE
     Dosage: 1.2 MG/KG, Q21D, IV DRIP
     Route: 041
     Dates: start: 20140423
  4. CORTICOSTEROIDS [Concomitant]
     Active Substance: CORTICOSTEROID NOS
  5. CRAVIT ( LEVOFLOXACIN) [Concomitant]
  6. VFEND ( VORICONAZOLE) [Concomitant]
  7. FLUCONAZOLE. [Concomitant]
     Active Substance: FLUCONAZOLE

REACTIONS (9)
  - Renal disorder [None]
  - Peripheral sensory neuropathy [None]
  - Engraft failure [None]
  - Pneumonia [None]
  - Liver disorder [None]
  - Bone marrow failure [None]
  - Condition aggravated [None]
  - Febrile neutropenia [None]
  - Systemic candida [None]

NARRATIVE: CASE EVENT DATE: 20140402
